FAERS Safety Report 4519829-4 (Version None)
Quarter: 2004Q4

REPORT INFORMATION
  Report Type: 
  Country: None (occurrence: None)
  Receive Date: 20041207
  Receipt Date: 20041201
  Transmission Date: 20050328
  Serious: Yes (Death, Other)
  Sender: FDA-Public Use
  Company Number: PHBS2004FI16171

PATIENT
  Age: 8 Year
  Sex: Male

DRUGS (8)
  1. IRRADIATION [Concomitant]
  2. MELPHALAN [Concomitant]
  3. ANTILYMPHOCYTE GLOBULIN [Concomitant]
  4. CYCLOPHOSPHAMIDE [Concomitant]
  5. METHOTREXATE [Concomitant]
  6. CORTICOSTEROIDS [Concomitant]
     Indication: GRAFT VERSUS HOST DISEASE
  7. AMPHOTERICIN B [Concomitant]
  8. CYCLOSPORINE [Suspect]
     Indication: BONE MARROW TRANSPLANT
     Route: 065

REACTIONS (8)
  - BONE MARROW TRANSPLANT REJECTION [None]
  - FEBRILE NEUTROPENIA [None]
  - FUSARIUM INFECTION [None]
  - GRAFT DYSFUNCTION [None]
  - GRAFT VERSUS HOST DISEASE [None]
  - MULTI-ORGAN FAILURE [None]
  - PNEUMONITIS [None]
  - RASH PUSTULAR [None]
